FAERS Safety Report 23682452 (Version 1)
Quarter: 2024Q1

REPORT INFORMATION
  Report Type: Other
  Country: CA (occurrence: None)
  Receive Date: 20240328
  Receipt Date: 20240328
  Transmission Date: 20240410
  Serious: Yes (Hospitalization, Other)
  Sender: FDA-Public Use
  Company Number: CA-ROCHE-3150123

PATIENT
  Age: 74 Year
  Sex: Male
  Weight: 60 kg

DRUGS (5)
  1. AVASTIN [Suspect]
     Active Substance: BEVACIZUMAB
     Indication: Hereditary haemorrhagic telangiectasia
     Dosage: NO PIRS
     Route: 042
     Dates: start: 20220715, end: 20220928
  2. AVASTIN [Suspect]
     Active Substance: BEVACIZUMAB
     Indication: Haemorrhage
     Dosage: NO PIRS
     Route: 042
     Dates: start: 20221108
  3. AVASTIN [Suspect]
     Active Substance: BEVACIZUMAB
     Indication: Anaemia
  4. HUMAN RED BLOOD CELL [Concomitant]
     Active Substance: HUMAN RED BLOOD CELL
  5. IRON [Concomitant]
     Active Substance: IRON

REACTIONS (6)
  - COVID-19 [Unknown]
  - Epistaxis [Unknown]
  - Tooth disorder [Unknown]
  - Malaise [Unknown]
  - Asthenia [Unknown]
  - Off label use [Unknown]

NARRATIVE: CASE EVENT DATE: 20220726
